FAERS Safety Report 6242105-9 (Version None)
Quarter: 2009Q2

REPORT INFORMATION
  Report Type: 
  Country: None (occurrence: None)
  Receive Date: 20090624
  Receipt Date: 20090615
  Transmission Date: 20091009
  Serious: Yes (Hospitalization)
  Sender: FDA-Public Use
  Company Number: JP-JNJCH-2009010592

PATIENT
  Sex: Male

DRUGS (6)
  1. CETIRIZINE HYDROCHLORIDE [Suspect]
     Indication: RHINITIS ALLERGIC
     Route: 048
     Dates: start: 20090303, end: 20090410
  2. CETIRIZINE HYDROCHLORIDE [Suspect]
     Indication: ECZEMA
  3. DEXAMETHASONE [Concomitant]
     Indication: DRUG USE FOR UNKNOWN INDICATION
     Dosage: TEXT:UNKNOWN
     Route: 061
     Dates: start: 20090303, end: 20090410
  4. HEPARIN [Concomitant]
     Indication: DRUG USE FOR UNKNOWN INDICATION
     Dosage: TEXT:UNKNOWN
     Route: 065
     Dates: start: 20090303, end: 20090410
  5. KETOTIFEN FUMARATE [Concomitant]
     Indication: DRUG USE FOR UNKNOWN INDICATION
     Dosage: TEXT:UNKNOWN
     Route: 045
     Dates: start: 20090303, end: 20090410
  6. FLUTICASONE PROPIONATE [Concomitant]
     Indication: DRUG USE FOR UNKNOWN INDICATION
     Dosage: TEXT:UNKNOWN
     Route: 055
     Dates: start: 20090316, end: 20090410

REACTIONS (2)
  - HYPERTENSION [None]
  - LIVER FUNCTION TEST ABNORMAL [None]
